FAERS Safety Report 6838863-2 (Version None)
Quarter: 2010Q3

REPORT INFORMATION
  Report Type: 
  Country: None (occurrence: None)
  Receive Date: 20100713
  Receipt Date: 20070807
  Transmission Date: 20110219
  Serious: Yes (Other)
  Sender: FDA-Public Use
  Company Number: US-PFIZER INC-2007047850

PATIENT
  Sex: Female
  Weight: 84.09 kg

DRUGS (10)
  1. CHANTIX [Suspect]
     Indication: SMOKING CESSATION THERAPY
     Route: 048
     Dates: start: 20070307
  2. LASIX [Suspect]
     Indication: CARDIOMYOPATHY
     Route: 048
  3. DIGOXIN [Suspect]
     Indication: CARDIOMYOPATHY
     Route: 048
  4. COREG [Concomitant]
  5. SPIRONOLACTONE [Concomitant]
  6. BENICAR [Concomitant]
  7. BENADRYL [Concomitant]
     Indication: HYPERSENSITIVITY
  8. ACETYLSALICYLIC ACID [Concomitant]
  9. CALCIUM CITRATE [Concomitant]
  10. CENTRUM SILVER [Concomitant]

REACTIONS (5)
  - EOSINOPHIL COUNT INCREASED [None]
  - HYPERSENSITIVITY [None]
  - NEURODERMATITIS [None]
  - PRURITUS [None]
  - WEIGHT INCREASED [None]
